FAERS Safety Report 24354374 (Version 2)
Quarter: 2025Q1

REPORT INFORMATION
  Report Type: Spontaneous
  Country: FR (occurrence: FR)
  Receive Date: 20240923
  Receipt Date: 20250324
  Transmission Date: 20250409
  Serious: Yes (Life-Threatening, Hospitalization, Other)
  Sender: MYLAN
  Company Number: None

PATIENT
  Age: 29 Year
  Sex: Female
  Weight: 79 kg

DRUGS (52)
  1. DEXAMETHASONE [Suspect]
     Active Substance: DEXAMETHASONE
     Indication: Anaesthesia
     Dates: start: 20240419, end: 20240419
  2. DEXAMETHASONE [Suspect]
     Active Substance: DEXAMETHASONE
     Route: 042
     Dates: start: 20240419, end: 20240419
  3. DEXAMETHASONE [Suspect]
     Active Substance: DEXAMETHASONE
     Route: 042
     Dates: start: 20240419, end: 20240419
  4. DEXAMETHASONE [Suspect]
     Active Substance: DEXAMETHASONE
     Dates: start: 20240419, end: 20240419
  5. MIDAZOLAM [Suspect]
     Active Substance: MIDAZOLAM
     Indication: Anaesthesia
     Dates: start: 20240419, end: 20240419
  6. MIDAZOLAM [Suspect]
     Active Substance: MIDAZOLAM
     Route: 042
     Dates: start: 20240419, end: 20240419
  7. MIDAZOLAM [Suspect]
     Active Substance: MIDAZOLAM
     Route: 042
     Dates: start: 20240419, end: 20240419
  8. MIDAZOLAM [Suspect]
     Active Substance: MIDAZOLAM
     Dates: start: 20240419, end: 20240419
  9. NEFOPAM [Suspect]
     Active Substance: NEFOPAM
     Indication: Anaesthesia
     Dates: start: 20240419, end: 20240419
  10. NEFOPAM [Suspect]
     Active Substance: NEFOPAM
     Route: 042
     Dates: start: 20240419, end: 20240419
  11. NEFOPAM [Suspect]
     Active Substance: NEFOPAM
     Route: 042
     Dates: start: 20240419, end: 20240419
  12. NEFOPAM [Suspect]
     Active Substance: NEFOPAM
     Dates: start: 20240419, end: 20240419
  13. CEFAZOLIN [Suspect]
     Active Substance: CEFAZOLIN
     Indication: Antibiotic prophylaxis
     Dates: start: 20240419, end: 20240419
  14. CEFAZOLIN [Suspect]
     Active Substance: CEFAZOLIN
     Route: 042
     Dates: start: 20240419, end: 20240419
  15. CEFAZOLIN [Suspect]
     Active Substance: CEFAZOLIN
     Route: 042
     Dates: start: 20240419, end: 20240419
  16. CEFAZOLIN [Suspect]
     Active Substance: CEFAZOLIN
     Dates: start: 20240419, end: 20240419
  17. PROPOFOL [Suspect]
     Active Substance: PROPOFOL
     Indication: Anaesthesia
     Dates: start: 20240419, end: 20240419
  18. PROPOFOL [Suspect]
     Active Substance: PROPOFOL
     Route: 042
     Dates: start: 20240419, end: 20240419
  19. PROPOFOL [Suspect]
     Active Substance: PROPOFOL
     Route: 042
     Dates: start: 20240419, end: 20240419
  20. PROPOFOL [Suspect]
     Active Substance: PROPOFOL
     Dates: start: 20240419, end: 20240419
  21. EPINEPHRINE\LIDOCAINE HYDROCHLORIDE [Suspect]
     Active Substance: EPINEPHRINE\LIDOCAINE HYDROCHLORIDE
     Indication: Anaesthesia
     Dates: start: 20240419, end: 20240419
  22. EPINEPHRINE\LIDOCAINE HYDROCHLORIDE [Suspect]
     Active Substance: EPINEPHRINE\LIDOCAINE HYDROCHLORIDE
     Route: 065
     Dates: start: 20240419, end: 20240419
  23. EPINEPHRINE\LIDOCAINE HYDROCHLORIDE [Suspect]
     Active Substance: EPINEPHRINE\LIDOCAINE HYDROCHLORIDE
     Route: 065
     Dates: start: 20240419, end: 20240419
  24. EPINEPHRINE\LIDOCAINE HYDROCHLORIDE [Suspect]
     Active Substance: EPINEPHRINE\LIDOCAINE HYDROCHLORIDE
     Dates: start: 20240419, end: 20240419
  25. KETAMINE [Suspect]
     Active Substance: KETAMINE
     Indication: Anaesthesia
     Dates: start: 20240419, end: 20240419
  26. KETAMINE [Suspect]
     Active Substance: KETAMINE
     Route: 042
     Dates: start: 20240419, end: 20240419
  27. KETAMINE [Suspect]
     Active Substance: KETAMINE
     Route: 042
     Dates: start: 20240419, end: 20240419
  28. KETAMINE [Suspect]
     Active Substance: KETAMINE
     Dates: start: 20240419, end: 20240419
  29. ROPIVACAINE HYDROCHLORIDE [Suspect]
     Active Substance: ROPIVACAINE HYDROCHLORIDE
     Indication: Anaesthesia
     Dates: start: 20240419, end: 20240419
  30. ROPIVACAINE HYDROCHLORIDE [Suspect]
     Active Substance: ROPIVACAINE HYDROCHLORIDE
     Route: 065
     Dates: start: 20240419, end: 20240419
  31. ROPIVACAINE HYDROCHLORIDE [Suspect]
     Active Substance: ROPIVACAINE HYDROCHLORIDE
     Route: 065
     Dates: start: 20240419, end: 20240419
  32. ROPIVACAINE HYDROCHLORIDE [Suspect]
     Active Substance: ROPIVACAINE HYDROCHLORIDE
     Dates: start: 20240419, end: 20240419
  33. ATRACURIUM [Suspect]
     Active Substance: ATRACURIUM
     Indication: Anaesthesia
     Dates: start: 20240419, end: 20240419
  34. ATRACURIUM [Suspect]
     Active Substance: ATRACURIUM
     Route: 042
     Dates: start: 20240419, end: 20240419
  35. ATRACURIUM [Suspect]
     Active Substance: ATRACURIUM
     Route: 042
     Dates: start: 20240419, end: 20240419
  36. ATRACURIUM [Suspect]
     Active Substance: ATRACURIUM
     Dates: start: 20240419, end: 20240419
  37. LIDOCAINE [Suspect]
     Active Substance: LIDOCAINE
     Indication: Anaesthesia
     Dates: start: 20240419, end: 20240419
  38. LIDOCAINE [Suspect]
     Active Substance: LIDOCAINE
     Route: 065
     Dates: start: 20240419, end: 20240419
  39. LIDOCAINE [Suspect]
     Active Substance: LIDOCAINE
     Route: 065
     Dates: start: 20240419, end: 20240419
  40. LIDOCAINE [Suspect]
     Active Substance: LIDOCAINE
     Dates: start: 20240419, end: 20240419
  41. ACETAMINOPHEN [Suspect]
     Active Substance: ACETAMINOPHEN
     Indication: Anaesthesia
     Dates: start: 20240419, end: 20240419
  42. ACETAMINOPHEN [Suspect]
     Active Substance: ACETAMINOPHEN
     Route: 042
     Dates: start: 20240419, end: 20240419
  43. ACETAMINOPHEN [Suspect]
     Active Substance: ACETAMINOPHEN
     Route: 042
     Dates: start: 20240419, end: 20240419
  44. ACETAMINOPHEN [Suspect]
     Active Substance: ACETAMINOPHEN
     Dates: start: 20240419, end: 20240419
  45. SUFENTANIL [Concomitant]
     Active Substance: SUFENTANIL
     Indication: Anaesthesia
     Dates: start: 20240419, end: 20240419
  46. SUFENTANIL [Concomitant]
     Active Substance: SUFENTANIL
     Route: 042
     Dates: start: 20240419, end: 20240419
  47. SUFENTANIL [Concomitant]
     Active Substance: SUFENTANIL
     Route: 042
     Dates: start: 20240419, end: 20240419
  48. SUFENTANIL [Concomitant]
     Active Substance: SUFENTANIL
     Dates: start: 20240419, end: 20240419
  49. SODIUM CHLORIDE [Concomitant]
     Active Substance: SODIUM CHLORIDE
     Dates: start: 20240419, end: 20240419
  50. SODIUM CHLORIDE [Concomitant]
     Active Substance: SODIUM CHLORIDE
     Route: 042
     Dates: start: 20240419, end: 20240419
  51. SODIUM CHLORIDE [Concomitant]
     Active Substance: SODIUM CHLORIDE
     Route: 042
     Dates: start: 20240419, end: 20240419
  52. SODIUM CHLORIDE [Concomitant]
     Active Substance: SODIUM CHLORIDE
     Dates: start: 20240419, end: 20240419

REACTIONS (1)
  - Anaphylactic reaction [Recovered/Resolved]

NARRATIVE: CASE EVENT DATE: 20240419
